FAERS Safety Report 8250644-4 (Version None)
Quarter: 2012Q2

REPORT INFORMATION
  Report Type: 
  Country: None (occurrence: None)
  Receive Date: 20120402
  Receipt Date: 20120323
  Transmission Date: 20120825
  Serious: Yes (Other)
  Sender: FDA-Public Use
  Company Number: US-BAYER-2012-028788

PATIENT
  Age: 28 Year
  Sex: Female
  Weight: 88 kg

DRUGS (4)
  1. DICLOFENAC SODIUM [Concomitant]
     Dosage: 75 MG, TABLET TWICE DAILY AS NEEDED
  2. DROSPIRENONE AND ETHINYL ESTRADIOL [Suspect]
     Dosage: UNK
  3. VICODIN [Concomitant]
     Indication: PAIN
     Dosage: 5-500, 1-2 TABLETS EVERY 4-6 HOURS AS NEEDED
  4. CIPROFLOXACIN [Concomitant]
     Dosage: 250 MG, UNK

REACTIONS (1)
  - DEEP VEIN THROMBOSIS [None]
